FAERS Safety Report 5930649-6 (Version None)
Quarter: 2008Q4

REPORT INFORMATION
  Report Type: 
  Country: None (occurrence: None)
  Receive Date: 20081024
  Receipt Date: 20081024
  Transmission Date: 20090506
  Serious: Yes (Hospitalization, Disabling)
  Sender: FDA-Public Use
  Company Number: None

PATIENT
  Age: 18 Year
  Sex: Male
  Weight: 63.5036 kg

DRUGS (1)
  1. HALDOL [Suspect]
     Indication: AGITATION
     Dosage: PRN IM
     Route: 030
     Dates: start: 20081018, end: 20081020

REACTIONS (6)
  - DOCUMENTED HYPERSENSITIVITY TO ADMINISTERED DRUG [None]
  - DRUG DISPENSING ERROR [None]
  - EXTRAPYRAMIDAL DISORDER [None]
  - FEAR [None]
  - MEDICATION ERROR [None]
  - WRONG DRUG ADMINISTERED [None]
